FAERS Safety Report 13457661 (Version 1)
Quarter: 2017Q2

REPORT INFORMATION
  Report Type: Spontaneous
  Country: US (occurrence: US)
  Receive Date: 20170419
  Receipt Date: 20170419
  Transmission Date: 20170830
  Serious: No
  Sender: FDA-Public Use
  Company Number: US-ASTRAZENECA-2017SE39091

PATIENT
  Sex: Female
  Weight: 77.1 kg

DRUGS (5)
  1. POTASSIUM CITRATE. [Concomitant]
     Active Substance: POTASSIUM CITRATE
  2. ALLOPURINOL. [Concomitant]
     Active Substance: ALLOPURINOL
  3. BYDUREON [Suspect]
     Active Substance: EXENATIDE
     Indication: DIABETES MELLITUS
     Dosage: 2 MG, ONCE A WEEK, 4 COUNT
     Route: 058
     Dates: start: 20170404
  4. LANTUS [Concomitant]
     Active Substance: INSULIN GLARGINE
  5. MAGNESIUM OXIDE. [Concomitant]
     Active Substance: MAGNESIUM OXIDE

REACTIONS (4)
  - Hot flush [Unknown]
  - Blood glucose decreased [Unknown]
  - Abdominal pain upper [Unknown]
  - Abdominal discomfort [Unknown]
